FAERS Safety Report 18328087 (Version 1)
Quarter: 2020Q3

REPORT INFORMATION
  Report Type: Spontaneous
  Country: US (occurrence: US)
  Receive Date: 20200929
  Receipt Date: 20200929
  Transmission Date: 20201103
  Serious: Yes (Death, Hospitalization, Other)
  Sender: FDA-Public Use
  Company Number: US-JNJFOC-20200535520

PATIENT
  Age: 60 Year
  Sex: Female
  Weight: 106.24 kg

DRUGS (4)
  1. J AND J BABY POWDER [Suspect]
     Indication: PRODUCT USED FOR UNKNOWN INDICATION
     Dosage: APPLIED LIBERALLY EVERYDAY, 3 TIMES A DAY OR MORE
     Route: 061
     Dates: start: 19710101
  2. SHOWER TO SHOWER POWDER [Suspect]
     Active Substance: TALC
     Indication: PRODUCT USED FOR UNKNOWN INDICATION
     Route: 061
  3. BENADRYL [Concomitant]
     Active Substance: DIPHENHYDRAMINE HYDROCHLORIDE
     Indication: PRODUCT USED FOR UNKNOWN INDICATION
     Route: 065
  4. JBABY BABY POWDER UNSPECIFIED (ZINC OXIDE) [Suspect]
     Active Substance: ZINC OXIDE
     Indication: PRODUCT USED FOR UNKNOWN INDICATION
     Route: 061

REACTIONS (1)
  - Ovarian cancer metastatic [Fatal]

NARRATIVE: CASE EVENT DATE: 20110415
